FAERS Safety Report 4911582-5 (Version None)
Quarter: 2006Q1

REPORT INFORMATION
  Report Type: 
  Country: None (occurrence: None)
  Receive Date: 20060214
  Receipt Date: 20051004
  Transmission Date: 20060701
  Serious: Yes (Hospitalization, Disabling)
  Sender: FDA-Public Use
  Company Number: US-MERCK-0510USA03075

PATIENT
  Age: 58 Year
  Sex: Male
  Weight: 82 kg

DRUGS (11)
  1. VIOXX [Suspect]
     Indication: ARTHRITIS
     Route: 048
     Dates: start: 19990629, end: 20030101
  2. CARDIZEM [Concomitant]
     Route: 048
  3. CARDURA [Concomitant]
     Route: 048
  4. CLORAZEPATE DIPOTASSIUM [Concomitant]
     Route: 048
  5. TRIMOX [Concomitant]
     Route: 048
  6. ZOCOR [Concomitant]
     Route: 048
  7. REMERON [Concomitant]
     Route: 048
  8. TOPROL-XL [Concomitant]
     Route: 048
  9. WELLBUTRIN [Suspect]
     Route: 048
  10. HYZAAR [Suspect]
     Route: 048
  11. ALTACE [Suspect]
     Route: 048

REACTIONS (17)
  - ACTINIC KERATOSIS [None]
  - ACUTE MYOCARDIAL INFARCTION [None]
  - ASTHMA [None]
  - BENIGN PROSTATIC HYPERPLASIA [None]
  - BLOOD PRESSURE INCREASED [None]
  - COUGH [None]
  - DIZZINESS [None]
  - ERECTILE DYSFUNCTION [None]
  - FLUSHING [None]
  - HAEMATURIA [None]
  - HEADACHE [None]
  - HYPERLIPIDAEMIA [None]
  - MYALGIA [None]
  - MYOCARDIAL INFARCTION [None]
  - NASAL CONGESTION [None]
  - PERIPHERAL ISCHAEMIA [None]
  - VISUAL ACUITY REDUCED [None]
